FAERS Safety Report 6782395-7 (Version None)
Quarter: 2010Q2

REPORT INFORMATION
  Report Type: 
  Country: None (occurrence: None)
  Receive Date: 20100621
  Receipt Date: 20100610
  Transmission Date: 20101027
  Serious: No
  Sender: FDA-Public Use
  Company Number: US-B.I. PHARMACEUTICALS,INC./RIDGEFIELD-2010-BP-05571BP

PATIENT
  Age: 67 Year
  Sex: Male

DRUGS (5)
  1. FLOMAX [Suspect]
     Indication: BENIGN PROSTATIC HYPERPLASIA
     Dosage: 0.4 MG
     Dates: start: 20061001, end: 20091001
  2. LIPITOR [Concomitant]
  3. ASPIRIN [Concomitant]
     Dosage: 81 MG
  4. AZILECT [Concomitant]
  5. SINEMET [Concomitant]

REACTIONS (4)
  - BACK PAIN [None]
  - CHEST PAIN [None]
  - PARKINSON'S DISEASE [None]
  - SOMNOLENCE [None]
